FAERS Safety Report 7276678-4 (Version None)
Quarter: 2011Q1

REPORT INFORMATION
  Report Type: 
  Country: None (occurrence: None)
  Receive Date: 20110204
  Receipt Date: 20110201
  Transmission Date: 20110831
  Serious: Yes (Death, Hospitalization)
  Sender: FDA-Public Use
  Company Number: NL-MERCK-0903NLD00015

PATIENT
  Age: 67 Year
  Sex: Female

DRUGS (7)
  1. CAPTOPRIL [Concomitant]
     Route: 065
  2. CHLORTHALIDONE [Concomitant]
     Route: 065
  3. BECLOMETHASONE DIPROPIONATE [Concomitant]
     Route: 065
  4. PSYLLIUM HUSK [Concomitant]
     Route: 065
  5. ZOCOR [Suspect]
     Route: 048
  6. ITRACONAZOLE [Suspect]
     Indication: ONYCHOMYCOSIS
     Route: 065
  7. CIPROFIBRATE [Concomitant]
     Indication: HYPERLIPIDAEMIA
     Route: 065

REACTIONS (5)
  - INAPPROPRIATE SCHEDULE OF DRUG ADMINISTRATION [None]
  - METABOLIC ACIDOSIS [None]
  - PANCREATITIS NECROTISING [None]
  - HEPATIC FAILURE [None]
  - DRUG INTERACTION [None]
